FAERS Safety Report 4295901-1 (Version None)
Quarter: 2004Q1

REPORT INFORMATION
  Report Type: 
  Country: None (occurrence: None)
  Receive Date: 20040216
  Receipt Date: 20031203
  Transmission Date: 20041129
  Serious: Yes (Other)
  Sender: FDA-Public Use
  Company Number: US-GLAXOSMITHKLINE-A0441761A

PATIENT
  Age: 33 Year
  Sex: Female

DRUGS (3)
  1. LAMICTAL [Suspect]
     Indication: BIPOLAR DISORDER
     Dosage: 50MG PER DAY
     Route: 048
     Dates: start: 20031114, end: 20031201
  2. LEXAPRO [Concomitant]
     Dosage: 10MG UNKNOWN
     Route: 065
     Dates: start: 20030929
  3. WELLBUTRIN [Concomitant]
     Dosage: 100MG UNKNOWN
     Route: 048
     Dates: start: 20011220

REACTIONS (7)
  - LYMPHADENOPATHY [None]
  - MALAISE [None]
  - NAUSEA [None]
  - PAIN [None]
  - PYREXIA [None]
  - RASH GENERALISED [None]
  - URTICARIA [None]
